FAERS Safety Report 20772270 (Version 2)
Quarter: 2022Q2

REPORT INFORMATION
  Report Type: Report from Study
  Country: DE (occurrence: DE)
  Receive Date: 20220502
  Receipt Date: 20220601
  Transmission Date: 20220720
  Serious: Yes (Other)
  Sender: FDA-Public Use
  Company Number: DE-SA-SAC20220426000407

PATIENT
  Age: 68 Year
  Sex: Female
  Weight: 51 kg

DRUGS (6)
  1. ISATUXIMAB [Suspect]
     Active Substance: ISATUXIMAB
     Indication: Plasma cell myeloma
     Dosage: 10 UG/KG
     Route: 042
     Dates: start: 20210719, end: 20220311
  2. CARFILZOMIB [Suspect]
     Active Substance: CARFILZOMIB
     Indication: Plasma cell myeloma
     Dosage: 56 UG/M2
     Route: 042
     Dates: start: 20210719, end: 20220311
  3. LENALIDOMIDE [Suspect]
     Active Substance: LENALIDOMIDE
     Indication: Plasma cell myeloma
     Dosage: 5 MG
     Route: 048
     Dates: start: 20210719, end: 20220225
  4. DEXAMETHASONE [Suspect]
     Active Substance: DEXAMETHASONE
     Indication: Plasma cell myeloma
     Dosage: 20 MG
     Route: 042
     Dates: start: 20210719, end: 20220311
  5. ASPIRIN [Concomitant]
     Active Substance: ASPIRIN
     Indication: Embolism venous
     Dosage: 100 MG, QD
     Route: 048
     Dates: start: 20210719, end: 20220419
  6. ACYCLOVIR [Concomitant]
     Active Substance: ACYCLOVIR
     Indication: Antiviral prophylaxis
     Dosage: 400 MG, BID (1-0-1)
     Route: 048
     Dates: start: 20210719, end: 20220419

REACTIONS (1)
  - COVID-19 [Recovered/Resolved]

NARRATIVE: CASE EVENT DATE: 20220420
